FAERS Safety Report 10647710 (Version 3)
Quarter: 2015Q1

REPORT INFORMATION
  Report Type: Spontaneous
  Country: TR (occurrence: TR)
  Receive Date: 20141212
  Receipt Date: 20150127
  Transmission Date: 20150720
  Serious: Yes (Other)
  Sender: FDA-Public Use
  Company Number: TR-AMGEN-TURSP2014049953

PATIENT
  Age: 34 Year
  Sex: Female

DRUGS (2)
  1. DELTACORTRIL                       /00016201/ [Concomitant]
     Dosage: UNK
  2. ENBREL [Suspect]
     Active Substance: ETANERCEPT
     Indication: ANKYLOSING SPONDYLITIS
     Dosage: 25 MG, TWICE WEEKLY
     Route: 058
     Dates: start: 20140321, end: 201406

REACTIONS (8)
  - Condition aggravated [Recovered/Resolved]
  - Menstruation irregular [Not Recovered/Not Resolved]
  - Mobility decreased [Recovered/Resolved]
  - Metrorrhagia [Not Recovered/Not Resolved]
  - Otitis externa [Recovered/Resolved]
  - Anal abscess [Recovered/Resolved]
  - Endometrial hypertrophy [Not Recovered/Not Resolved]
  - Pain in extremity [Recovered/Resolved]

NARRATIVE: CASE EVENT DATE: 201403
